FAERS Safety Report 13935544 (Version 1)
Quarter: 2017Q3

REPORT INFORMATION
  Report Type: Report from Study
  Country: AR (occurrence: AR)
  Receive Date: 20170905
  Receipt Date: 20170905
  Transmission Date: 20171127
  Serious: Yes (Death, Hospitalization)
  Sender: FDA-Public Use
  Company Number: PHHY2017AR130006

PATIENT
  Sex: Female

DRUGS (1)
  1. ENTRESTO [Suspect]
     Active Substance: SACUBITRIL\VALSARTAN
     Indication: CARDIAC FAILURE CHRONIC
     Dosage: 50 MG, BID (2 PER DAY)
     Route: 065
     Dates: start: 20170111, end: 20170401

REACTIONS (4)
  - Cardiac disorder [Unknown]
  - Pneumonia [Fatal]
  - Arterial occlusive disease [Unknown]
  - Skin discolouration [Unknown]
